FAERS Safety Report 15172423 (Version 1)
Quarter: 2018Q3

REPORT INFORMATION
  Report Type: Spontaneous
  Country: US (occurrence: US)
  Receive Date: 20180622
  Receipt Date: 20180622
  Transmission Date: 20181010
  Serious: No
  Sender: FDA-Public Use
  Company Number: None

PATIENT
  Age: 30 Year
  Sex: Female
  Weight: 58.5 kg

DRUGS (15)
  1. FLUTICASONE 50MCG [Suspect]
     Active Substance: FLUTICASONE
     Indication: HYPERSENSITIVITY
     Dosage: ?          QUANTITY:2 SPRAY(S);OTHER ROUTE:NASAL?
  2. LITHIUM CARB [Concomitant]
     Active Substance: LITHIUM CARBONATE
  3. LEVOCETIRIZINE [Concomitant]
     Active Substance: LEVOCETIRIZINE
  4. GINGER ROOT [Concomitant]
     Active Substance: GINGER
  5. VITAMIN D3 [Concomitant]
     Active Substance: CHOLECALCIFEROL
  6. B6 [Concomitant]
     Active Substance: PYRIDOXINE HYDROCHLORIDE
  7. DULERA [Concomitant]
     Active Substance: FORMOTEROL FUMARATE DIHYDRATE\MOMETASONE FUROATE
  8. VENTOLIN [Concomitant]
     Active Substance: ALBUTEROL SULFATE
  9. CBD OIL [Concomitant]
     Active Substance: CANNABIDIOL
  10. TUMERIC [Concomitant]
     Active Substance: HERBALS\TURMERIC
  11. MAGNESIUM [Concomitant]
     Active Substance: MAGNESIUM
  12. FLUTICASONE 50MCG [Suspect]
     Active Substance: FLUTICASONE
     Indication: ASTHMA
     Dosage: ?          QUANTITY:2 SPRAY(S);OTHER ROUTE:NASAL?
  13. BIOTIN [Concomitant]
     Active Substance: BIOTIN
  14. TYLENOL [Concomitant]
     Active Substance: ACETAMINOPHEN
  15. FISH OIL [Concomitant]
     Active Substance: FISH OIL

REACTIONS (5)
  - Recalled product [None]
  - Product contamination physical [None]
  - Perfume sensitivity [None]
  - Product substitution issue [None]
  - Lactose intolerance [None]

NARRATIVE: CASE EVENT DATE: 20180501
